FAERS Safety Report 25925710 (Version 1)
Quarter: 2025Q4

REPORT INFORMATION
  Report Type: Spontaneous
  Country: US (occurrence: None)
  Receive Date: 20251014
  Receipt Date: 20251014
  Transmission Date: 20260117
  Serious: Yes (Death)
  Sender: FDA-CTU
  Company Number: None

PATIENT
  Age: 69 Year
  Sex: Female

DRUGS (8)
  1. NUCALA [Suspect]
     Active Substance: MEPOLIZUMAB
     Indication: Chronic obstructive pulmonary disease
     Dosage: 100/1 MG/ML  Q MNTH SUBCUTNEOUS
     Route: 058
     Dates: start: 20250804, end: 20250903
  2. AMLODIPINE BESYLATE [Concomitant]
     Active Substance: AMLODIPINE BESYLATE
  3. CELECOXIB [Concomitant]
     Active Substance: CELECOXIB
  4. IPRATROPI/ALB 0.5/3MG INH SL 30X3ML [Concomitant]
  5. LEVOTHYROXINE 0.025MG (25MCG) TAB [Concomitant]
  6. LOSARTAN POTASSIUM [Concomitant]
     Active Substance: LOSARTAN POTASSIUM
  7. PREGABALIN [Concomitant]
     Active Substance: PREGABALIN
  8. VITAMIN D 1.000UNIT CAPSULES [Concomitant]

REACTIONS (1)
  - Death [None]

NARRATIVE: CASE EVENT DATE: 20251005
